FAERS Safety Report 8057103-2 (Version None)
Quarter: 2012Q1

REPORT INFORMATION
  Report Type: 
  Country: None (occurrence: None)
  Receive Date: 20120119
  Receipt Date: 20120109
  Transmission Date: 20120608
  Serious: Yes (Death, Other)
  Sender: FDA-Public Use
  Company Number: US-BAXTER-2012BH000672

PATIENT
  Sex: Female

DRUGS (1)
  1. DIANEAL [Suspect]
     Indication: PERITONEAL DIALYSIS
     Route: 033
     Dates: start: 20110101, end: 20120108

REACTIONS (3)
  - AORTIC ANEURYSM RUPTURE [None]
  - ARTERIOVENOUS GRAFT SITE INFECTION [None]
  - AORTIC ANEURYSM [None]
